FAERS Safety Report 23067595 (Version 1)
Quarter: 2023Q4

REPORT INFORMATION
  Report Type: Spontaneous
  Country: US (occurrence: US)
  Receive Date: 20231016
  Receipt Date: 20231016
  Transmission Date: 20240110
  Serious: No
  Sender: FDA-Public Use
  Company Number: US-BEIGENE-BGN-2023-011632

PATIENT

DRUGS (1)
  1. BRUKINSA [Suspect]
     Active Substance: ZANUBRUTINIB
     Indication: Mantle cell lymphoma

REACTIONS (2)
  - Lipase increased [Recovering/Resolving]
  - Amylase increased [Recovering/Resolving]

NARRATIVE: CASE EVENT DATE: 20231009
